FAERS Safety Report 7419578-9 (Version None)
Quarter: 2011Q2

REPORT INFORMATION
  Report Type: 
  Country: None (occurrence: None)
  Receive Date: 20110418
  Receipt Date: 20110411
  Transmission Date: 20111010
  Serious: Yes (Hospitalization)
  Sender: FDA-Public Use
  Company Number: US-EISAI INC-E7389-01216-CLI-US

PATIENT
  Sex: Female
  Weight: 54 kg

DRUGS (5)
  1. KLONOPIN [Concomitant]
     Route: 048
  2. E7389 (BOLD) [Suspect]
     Route: 041
     Dates: start: 20100921
  3. NEXIUM [Concomitant]
     Route: 048
  4. WARFARIN [Concomitant]
     Route: 048
  5. PROZAC [Concomitant]
     Route: 048

REACTIONS (2)
  - ALCOHOL POISONING [None]
  - SYNCOPE [None]
